FAERS Safety Report 10084640 (Version 2)
Quarter: 2014Q4

REPORT INFORMATION
  Report Type: Spontaneous
  Country: US (occurrence: US)
  Receive Date: 20140417
  Receipt Date: 20141022
  Transmission Date: 20150528
  Serious: Yes (Other)
  Sender: FDA-Public Use
  Company Number: US-009507513-1404USA007893

PATIENT
  Sex: Male

DRUGS (1)
  1. PROPECIA [Suspect]
     Active Substance: FINASTERIDE
     Indication: ANDROGENETIC ALOPECIA
     Dosage: 1 MG, UNK
     Route: 048
     Dates: start: 201102, end: 201107

REACTIONS (8)
  - Prostate cancer [Unknown]
  - Sexual dysfunction [Not Recovered/Not Resolved]
  - Cognitive disorder [Not Recovered/Not Resolved]
  - Prostatomegaly [Unknown]
  - Loss of libido [Unknown]
  - Semen volume decreased [Unknown]
  - Erectile dysfunction [Unknown]
  - Laceration [Unknown]

NARRATIVE: CASE EVENT DATE: 2011
